FAERS Safety Report 23717539 (Version 2)
Quarter: 2024Q2

REPORT INFORMATION
  Report Type: Spontaneous
  Country: US (occurrence: US)
  Receive Date: 20240408
  Receipt Date: 20240415
  Transmission Date: 20240716
  Serious: Yes (Other)
  Sender: FDA-Public Use
  Company Number: US-ASTELLAS-2024EU003222

PATIENT
  Age: 64 Year
  Sex: Male

DRUGS (4)
  1. REGADENOSON [Suspect]
     Active Substance: REGADENOSON
     Indication: Dyspnoea exertional
     Dosage: 0.4 MG, UNKNOWN FREQ.
     Route: 042
  2. REGADENOSON [Suspect]
     Active Substance: REGADENOSON
     Indication: Dyspnoea exertional
     Dosage: 0.4 MG, UNKNOWN FREQ.
     Route: 042
  3. REGADENOSON [Suspect]
     Active Substance: REGADENOSON
     Indication: Dyspnoea exertional
     Dosage: 0.4 MG, UNKNOWN FREQ.
     Route: 042
  4. REGADENOSON [Suspect]
     Active Substance: REGADENOSON
     Indication: Dyspnoea exertional
     Dosage: 0.4 MG, UNKNOWN FREQ.
     Route: 042

REACTIONS (1)
  - Kounis syndrome [Unknown]
